FAERS Safety Report 5269578-2 (Version None)
Quarter: 2007Q1

REPORT INFORMATION
  Report Type: 
  Country: None (occurrence: None)
  Receive Date: 20070320
  Receipt Date: 20070307
  Transmission Date: 20070707
  Serious: Yes (Hospitalization)
  Sender: FDA-Public Use
  Company Number: DE-AMGEN-UK214141

PATIENT
  Sex: Male

DRUGS (1)
  1. PALIFERMIN - BLINDED [Suspect]
     Indication: MUCOSAL INFLAMMATION
     Dates: start: 20061215

REACTIONS (1)
  - PERITONEAL CARCINOMA [None]
